FAERS Safety Report 4687699-X (Version None)
Quarter: 2005Q2

REPORT INFORMATION
  Report Type: 
  Country: None (occurrence: None)
  Receive Date: 20050610
  Receipt Date: 20050601
  Transmission Date: 20051028
  Serious: Yes (Death, Other)
  Sender: FDA-Public Use
  Company Number: 200515027GDDC

PATIENT
  Age: 47 Year
  Sex: Male

DRUGS (4)
  1. RIFADIN [Suspect]
     Indication: PNEUMOPERICARDIUM
     Route: 048
  2. ISCOTIN [Suspect]
  3. ETHAMBUTOL HCL [Suspect]
     Route: 048
  4. PYRAMIDE [Suspect]
     Route: 048

REACTIONS (5)
  - GASTRIC ULCER PERFORATION [None]
  - HEPATIC NECROSIS [None]
  - LIVER DISORDER [None]
  - MULTI-ORGAN FAILURE [None]
  - THERAPY NON-RESPONDER [None]
